FAERS Safety Report 18998228 (Version 3)
Quarter: 2021Q4

REPORT INFORMATION
  Report Type: Spontaneous
  Country: US (occurrence: US)
  Receive Date: 20210311
  Receipt Date: 20211215
  Transmission Date: 20220303
  Serious: No
  Sender: FDA-Public Use
  Company Number: US-PFIZER INC-2020517215

PATIENT
  Age: 44 Year
  Sex: Male

DRUGS (1)
  1. XELJANZ XR [Suspect]
     Active Substance: TOFACITINIB CITRATE
     Indication: Rheumatoid arthritis
     Dosage: 11 MG, 1X/DAY
     Route: 048
     Dates: start: 20200925

REACTIONS (7)
  - Hypertension [Unknown]
  - Blood pressure diastolic increased [Recovering/Resolving]
  - Blood cholesterol increased [Unknown]
  - Arthralgia [Recovering/Resolving]
  - Discouragement [Unknown]
  - Depressed mood [Unknown]
  - Hepatic enzyme increased [Unknown]

NARRATIVE: CASE EVENT DATE: 20210101
